FAERS Safety Report 9626245 (Version 1)
Quarter: 2013Q4

REPORT INFORMATION
  Report Type: Spontaneous
  Country: BR (occurrence: BR)
  Receive Date: 20131016
  Receipt Date: 20131016
  Transmission Date: 20140711
  Serious: Yes (Other)
  Sender: FDA-Public Use
  Company Number: BR-ASTRAZENECA-2013SE74837

PATIENT
  Sex: 0

DRUGS (1)
  1. ATACAND HCT [Suspect]
     Dosage: 16/12.5 MG, UNKNOWN FREQUENCY.
     Route: 048
     Dates: start: 2005, end: 201307

REACTIONS (5)
  - Ocular ischaemic syndrome [Unknown]
  - Macular degeneration [Unknown]
  - Hypotension [Recovered/Resolved]
  - Renal disorder [Unknown]
  - Blood uric acid increased [Unknown]
